APPROVED DRUG PRODUCT: GENTAFAIR
Active Ingredient: GENTAMICIN SULFATE
Strength: EQ 0.3% BASE
Dosage Form/Route: SOLUTION/DROPS;OPHTHALMIC
Application: A062440 | Product #001
Applicant: PHARMAFAIR INC
Approved: May 3, 1983 | RLD: No | RS: No | Type: DISCN